FAERS Safety Report 6806129-2 (Version None)
Quarter: 2010Q2

REPORT INFORMATION
  Report Type: 
  Country: None (occurrence: None)
  Receive Date: 20100629
  Receipt Date: 20080107
  Transmission Date: 20101027
  Serious: No
  Sender: FDA-Public Use
  Company Number: US-PFIZER INC-2008002198

PATIENT
  Sex: Male

DRUGS (5)
  1. VIAGRA [Interacting]
  2. NAPROSYN [Suspect]
  3. RISPERDAL [Interacting]
  4. LIPITOR [Interacting]
  5. ZESTORETIC [Interacting]

REACTIONS (5)
  - CHILLS [None]
  - DIARRHOEA [None]
  - DRUG INTERACTION [None]
  - ERECTILE DYSFUNCTION [None]
  - TREMOR [None]
